FAERS Safety Report 22023684 (Version 1)
Quarter: 2023Q1

REPORT INFORMATION
  Report Type: Spontaneous
  Country: US (occurrence: US)
  Receive Date: 20230223
  Receipt Date: 20230223
  Transmission Date: 20230417
  Serious: Yes (Hospitalization, Other)
  Sender: FDA-Public Use
  Company Number: US-ALEMBIC PHARMACUETICALS LIMITED-2023SCAL000071

PATIENT

DRUGS (1)
  1. CLONIDINE HYDROCHLORIDE [Suspect]
     Active Substance: CLONIDINE HYDROCHLORIDE
     Indication: Insomnia
     Dosage: 0.2 MG (CONSUMED SEVEN TO FIFTEEN PILLS TOTA)
     Route: 048

REACTIONS (13)
  - Overdose [Unknown]
  - Encephalopathy [Recovered/Resolved]
  - Bradycardia [Unknown]
  - Unresponsive to stimuli [Unknown]
  - Altered state of consciousness [Unknown]
  - Tachycardia [Recovered/Resolved]
  - Asthenia [Unknown]
  - Hypertension [Recovered/Resolved]
  - Hypotension [Unknown]
  - Dizziness [Unknown]
  - Constipation [Unknown]
  - Sedation [Unknown]
  - Dry mouth [Unknown]
